FAERS Safety Report 11488000 (Version 2)
Quarter: 2017Q1

REPORT INFORMATION
  Report Type: Report from Study
  Country: FR (occurrence: FR)
  Receive Date: 20150909
  Receipt Date: 20170322
  Transmission Date: 20170428
  Serious: Yes (Hospitalization, Other)
  Sender: FDA-Public Use
  Company Number: FR-JAZZ-JPI-P-032682

PATIENT
  Age: 11 Year
  Sex: Female
  Weight: 38 kg

DRUGS (13)
  1. XYREM [Suspect]
     Active Substance: SODIUM OXYBATE
     Indication: NARCOLEPSY
     Dosage: 1.5 G, BID
     Route: 048
     Dates: start: 20130402, end: 20130502
  2. DOLIPRANE [Suspect]
     Active Substance: ACETAMINOPHEN
     Indication: PYREXIA
     Dosage: UNKNOWN DOSE
     Dates: start: 20130928, end: 20130929
  3. ANTIBIOTICS [Suspect]
     Active Substance: UNSPECIFIED INGREDIENT
     Indication: PRODUCT USED FOR UNKNOWN INDICATION
     Dosage: UNK
  4. XYREM [Suspect]
     Active Substance: SODIUM OXYBATE
     Dosage: 3.75 G, BID
     Route: 048
     Dates: start: 2014
  5. XYREM [Suspect]
     Active Substance: SODIUM OXYBATE
     Dosage: 3 G, QD
     Route: 048
     Dates: start: 20140706, end: 20140707
  6. XYREM [Suspect]
     Active Substance: SODIUM OXYBATE
     Dosage: UNKNOWN DOSE
     Dates: start: 201409, end: 2014
  7. VENTOLINE [Concomitant]
     Active Substance: ALBUTEROL
     Indication: ASTHMA
     Dosage: UNK
     Route: 048
  8. XYREM [Suspect]
     Active Substance: SODIUM OXYBATE
     Indication: PYREXIA
     Dosage: 3 G, BID
     Route: 048
     Dates: start: 20130605, end: 20131102
  9. XYREM [Suspect]
     Active Substance: SODIUM OXYBATE
     Dosage: 3.75 G, BID
     Route: 048
     Dates: start: 20140116, end: 20140215
  10. XYREM [Suspect]
     Active Substance: SODIUM OXYBATE
     Dosage: 3.75 G, BID
     Route: 048
     Dates: start: 2014, end: 2014
  11. BECOTIDE [Concomitant]
     Active Substance: BECLOMETHASONE DIPROPIONATE
     Indication: ASTHMA
     Dosage: UNK
     Route: 048
  12. XYREM [Suspect]
     Active Substance: SODIUM OXYBATE
     Dosage: 3.75 G, BID
     Dates: start: 20140708, end: 20140903
  13. XYREM [Suspect]
     Active Substance: SODIUM OXYBATE
     Indication: CATAPLEXY
     Dosage: 2.25 G, BID
     Route: 048
     Dates: start: 20130503, end: 20130604

REACTIONS (34)
  - Skin reaction [Recovering/Resolving]
  - Insomnia [Unknown]
  - Decreased appetite [Unknown]
  - Nausea [Unknown]
  - Vaginal haemorrhage [Not Recovered/Not Resolved]
  - Crying [Unknown]
  - Pyrexia [Unknown]
  - Agitation [Unknown]
  - Vomiting [Unknown]
  - Fatigue [Not Recovered/Not Resolved]
  - Poor quality sleep [Recovered/Resolved]
  - Repetitive speech [Unknown]
  - Nightmare [Unknown]
  - Sleep talking [Unknown]
  - Rash [Recovered/Resolved]
  - Hydrometra [Not Recovered/Not Resolved]
  - Amenorrhoea [Recovered/Resolved]
  - Skin discolouration [Not Recovered/Not Resolved]
  - Somnolence [Unknown]
  - Drug ineffective [Unknown]
  - Somnambulism [Recovered/Resolved]
  - Enuresis [Unknown]
  - Confusional state [Recovered/Resolved]
  - Uterine necrosis [Unknown]
  - Drug hypersensitivity [Unknown]
  - Product use issue [Unknown]
  - Dry skin [Unknown]
  - Blood sodium increased [Unknown]
  - Amnesia [Unknown]
  - Tremor [Unknown]
  - Snoring [Unknown]
  - Abdominal pain [Unknown]
  - Headache [Unknown]
  - Depression [Unknown]

NARRATIVE: CASE EVENT DATE: 2013
